FAERS Safety Report 4701650-5 (Version None)
Quarter: 2005Q2

REPORT INFORMATION
  Report Type: 
  Country: None (occurrence: None)
  Receive Date: 20050627
  Receipt Date: 20050613
  Transmission Date: 20051028
  Serious: Yes (Hospitalization)
  Sender: FDA-Public Use
  Company Number: 2005087220

PATIENT
  Sex: Male

DRUGS (10)
  1. ARTHROTEC [Suspect]
     Indication: ILL-DEFINED DISORDER
     Dosage: 75 MG (75 MG, 1 IN 1 D), ORAL
     Route: 048
     Dates: end: 20050506
  2. ALDACTONE [Suspect]
     Indication: ILL-DEFINED DISORDER
     Dosage: 50 MG (50 MG, 1 IN 1 D), ORAL
     Route: 048
     Dates: end: 20050506
  3. ASPIRIN [Suspect]
     Indication: ILL-DEFINED DISORDER
     Dosage: 100 MG (100 MG, 1 IN 1 D), ORAL
     Route: 048
  4. ENALAPRIL MALEATE [Suspect]
     Indication: ILL-DEFINED DISORDER
     Dosage: 10 MG (10 MG, 1 IN 1 D), ORAL
     Route: 048
     Dates: end: 20050506
  5. LASIX [Suspect]
     Indication: ILL-DEFINED DISORDER
     Dosage: 40 MG (40 MG, 1 IN 1 D), ORAL
     Route: 048
     Dates: end: 20050506
  6. DEPAKENE [Concomitant]
  7. EFFEXOR [Concomitant]
  8. NOVOTHYRAL (LEVOTHYROXINE SODIUM, LIOTHYRONINE SODIUM) [Concomitant]
  9. LORAZEPAM [Concomitant]
  10. NOVONORM (REPAGLINIDE) [Concomitant]

REACTIONS (7)
  - DEHYDRATION [None]
  - HAEMORRHAGE [None]
  - HYPERKALAEMIA [None]
  - INTRACRANIAL INJURY [None]
  - ISCHAEMIA [None]
  - RENAL FAILURE ACUTE [None]
  - SOMNOLENCE [None]
